FAERS Safety Report 5331226-0 (Version None)
Quarter: 2007Q2

REPORT INFORMATION
  Report Type: 
  Country: None (occurrence: None)
  Receive Date: 20070522
  Receipt Date: 20070511
  Transmission Date: 20071010
  Serious: Yes (Hospitalization, Other)
  Sender: FDA-Public Use
  Company Number: US-MERCK-0704USA04704

PATIENT
  Age: 67 Year
  Sex: Male

DRUGS (16)
  1. VYTORIN [Suspect]
     Indication: HYPERCHOLESTEROLAEMIA
     Route: 048
  2. DILTIAZEM CD [Suspect]
     Indication: HYPERCHOLESTEROLAEMIA
     Route: 065
  3. AMIODARONA [Concomitant]
     Route: 065
     Dates: start: 20050101
  4. METOPROLOL [Concomitant]
     Route: 065
  5. LASIX [Concomitant]
     Route: 065
  6. AMITRIPTYLINE HYDROCHLORIDE [Concomitant]
     Route: 065
  7. LORAZEPAM [Concomitant]
     Route: 065
  8. LEVOTHYROXINE SODIUM [Concomitant]
     Route: 065
  9. ISOSORBIDE DINITRATE [Concomitant]
     Route: 065
  10. NITROGLYCERIN [Concomitant]
     Route: 065
  11. LANTUS [Concomitant]
     Route: 065
  12. NOVOLOG [Concomitant]
     Route: 065
  13. NORVASC [Concomitant]
     Route: 065
  14. DOXAZOSIN MESYLATE [Concomitant]
     Route: 065
  15. ASPIRIN [Concomitant]
     Route: 065
  16. PLAVIX [Concomitant]
     Indication: HYPERCHOLESTEROLAEMIA
     Route: 065

REACTIONS (4)
  - CARDIAC FAILURE CONGESTIVE [None]
  - DRUG INTERACTION [None]
  - RENAL FAILURE [None]
  - RHABDOMYOLYSIS [None]
